FAERS Safety Report 23026948 (Version 1)
Quarter: 2023Q4

REPORT INFORMATION
  Report Type: Spontaneous
  Country: US (occurrence: US)
  Receive Date: 20231004
  Receipt Date: 20231004
  Transmission Date: 20240110
  Serious: Yes (Other)
  Sender: FDA-Public Use
  Company Number: US-002147023-NVSC2023US210906

PATIENT
  Age: 58 Year
  Sex: Male

DRUGS (2)
  1. DABRAFENIB [Suspect]
     Active Substance: DABRAFENIB
     Indication: Papillary thyroid cancer
     Dosage: UNK
     Route: 065
  2. TRAMETINIB [Concomitant]
     Active Substance: TRAMETINIB
     Indication: Papillary thyroid cancer
     Dosage: UNK
     Route: 065

REACTIONS (3)
  - Uveitis [Recovered/Resolved]
  - Nausea [Unknown]
  - Product use in unapproved indication [Unknown]
